FAERS Safety Report 15002967 (Version 1)
Quarter: 2018Q2

REPORT INFORMATION
  Report Type: Report from Study
  Country: CA (occurrence: CA)
  Receive Date: 20180612
  Receipt Date: 20180612
  Transmission Date: 20180711
  Serious: Yes (Hospitalization)
  Sender: FDA-Public Use
  Company Number: CA-HLSUS-2018-CA-000896

PATIENT
  Age: 56 Year
  Sex: Male

DRUGS (1)
  1. APO-OLANZAPINE [Suspect]
     Active Substance: OLANZAPINE
     Indication: PRODUCT USED FOR UNKNOWN INDICATION
     Dosage: 30 MG 1 EVERY 1 DAY
     Route: 048

REACTIONS (6)
  - Agranulocytosis [Unknown]
  - Anaemia macrocytic [Unknown]
  - Mental impairment [Unknown]
  - Thrombocytopenia [Unknown]
  - White blood cell count decreased [Unknown]
  - Neutropenia [Unknown]
